FAERS Safety Report 7901627-2 (Version None)
Quarter: 2011Q4

REPORT INFORMATION
  Report Type: 
  Country: None (occurrence: None)
  Receive Date: 20111104
  Receipt Date: 20111021
  Transmission Date: 20120403
  Serious: Yes (Other)
  Sender: FDA-Public Use
  Company Number: TUK2011A00177

PATIENT
  Age: 82 Year
  Sex: Female

DRUGS (5)
  1. ADALAT [Concomitant]
  2. ATORVASTATIN [Concomitant]
  3. ACTOS [Suspect]
     Indication: PRODUCT USED FOR UNKNOWN INDICATION
     Dates: start: 20110718
  4. DOXAZOSIN MESYLATE [Concomitant]
  5. INDAPAMIDE [Concomitant]

REACTIONS (2)
  - HYPOGLYCAEMIA [None]
  - SYNCOPE [None]
